FAERS Safety Report 10552089 (Version 1)
Quarter: 2014Q4

REPORT INFORMATION
  Report Type: Report from Study
  Country: US (occurrence: US)
  Receive Date: 20141029
  Receipt Date: 20141029
  Transmission Date: 20150529
  Serious: Yes (Hospitalization)
  Sender: FDA-Public Use
  Company Number: US-JNJFOC-20141016936

PATIENT
  Age: 51 Year
  Sex: Female
  Weight: 98.43 kg

DRUGS (1)
  1. INVOKANA [Suspect]
     Active Substance: CANAGLIFLOZIN
     Indication: PRODUCT USED FOR UNKNOWN INDICATION
     Route: 048
     Dates: start: 201311

REACTIONS (12)
  - Adverse drug reaction [Unknown]
  - Vomiting [Unknown]
  - Nausea [Unknown]
  - Seizure [Recovered/Resolved]
  - Coma [Recovered/Resolved]
  - Thirst [Unknown]
  - Fall [Unknown]
  - Malaise [Unknown]
  - Feeling abnormal [Unknown]
  - Abasia [Not Recovered/Not Resolved]
  - Blood glucose increased [Unknown]
  - Syncope [Unknown]

NARRATIVE: CASE EVENT DATE: 2013
